FAERS Safety Report 19273404 (Version 1)
Quarter: 2021Q2

REPORT INFORMATION
  Report Type: Spontaneous
  Country: US (occurrence: US)
  Receive Date: 20210518
  Receipt Date: 20210518
  Transmission Date: 20210717
  Serious: Yes (Other)
  Sender: FDA-Public Use
  Company Number: None

PATIENT
  Age: 63 Year
  Sex: Male
  Weight: 99 kg

DRUGS (2)
  1. FLOMAX [Concomitant]
     Active Substance: TAMSULOSIN HYDROCHLORIDE
  2. MIRABEGRON [Suspect]
     Active Substance: MIRABEGRON
     Indication: DYSURIA
     Dosage: ?          QUANTITY:1 CAPSULE(S);?
     Route: 048
     Dates: start: 20210413, end: 20210507

REACTIONS (7)
  - Bacterial test positive [None]
  - Dysuria [None]
  - Hypertonic bladder [None]
  - Urine flow decreased [None]
  - Post micturition dribble [None]
  - Micturition urgency [None]
  - Urinary retention [None]

NARRATIVE: CASE EVENT DATE: 20210508
